FAERS Safety Report 4637292-X (Version None)
Quarter: 2005Q2

REPORT INFORMATION
  Report Type: 
  Country: None (occurrence: None)
  Receive Date: 20050418
  Receipt Date: 20050407
  Transmission Date: 20051028
  Serious: Yes (Death, Hospitalization)
  Sender: FDA-Public Use
  Company Number: 200513046GDDC

PATIENT
  Age: 63 Year
  Sex: Male
  Weight: 55 kg

DRUGS (6)
  1. TAXOTERE [Suspect]
     Indication: GASTRIC CANCER
     Route: 042
     Dates: start: 20050308, end: 20050308
  2. ANTINEOPLASTIC AND IMMUNOSUPPRESSIVE AGENTS [Suspect]
     Indication: GASTRIC CANCER
     Route: 048
     Dates: start: 20050308, end: 20050314
  3. DEXAMETHASONE [Concomitant]
     Indication: PREMEDICATION
     Route: 048
     Dates: start: 20050307, end: 20050309
  4. MEXOLON [Concomitant]
     Indication: PREMEDICATION
     Route: 042
     Dates: start: 20050308, end: 20050308
  5. ZOFRAN [Concomitant]
     Indication: PREMEDICATION
     Route: 042
     Dates: start: 20050308, end: 20050308
  6. RANITIDINE [Concomitant]
     Indication: PREMEDICATION
     Route: 042
     Dates: start: 20050308, end: 20050308

REACTIONS (10)
  - ACUTE RESPIRATORY DISTRESS SYNDROME [None]
  - DIARRHOEA [None]
  - DYSPNOEA [None]
  - FEBRILE NEUTROPENIA [None]
  - HEPATIC FAILURE [None]
  - HICCUPS [None]
  - METASTASES TO LIVER [None]
  - PNEUMONIA [None]
  - PYREXIA [None]
  - SEPTIC SHOCK [None]
